FAERS Safety Report 13163239 (Version 1)
Quarter: 2017Q1

REPORT INFORMATION
  Report Type: Spontaneous
  Country: US (occurrence: US)
  Receive Date: 20170130
  Receipt Date: 20170130
  Transmission Date: 20170428
  Serious: Yes (Other)
  Sender: FDA-Public Use
  Company Number: US-SA-2017SA013188

PATIENT
  Age: 42 Year
  Sex: Male

DRUGS (1)
  1. LEMTRADA [Suspect]
     Active Substance: ALEMTUZUMAB
     Indication: MULTIPLE SCLEROSIS
     Route: 041

REACTIONS (5)
  - Insomnia [Unknown]
  - Gastrooesophageal reflux disease [Unknown]
  - Hemiparesis [Unknown]
  - Fatigue [Unknown]
  - Asthenia [Unknown]
